FAERS Safety Report 21193121 (Version 1)
Quarter: 2022Q3

REPORT INFORMATION
  Report Type: Spontaneous
  Country: TW (occurrence: TW)
  Receive Date: 20220810
  Receipt Date: 20220810
  Transmission Date: 20221026
  Serious: Yes (Other)
  Sender: FDA-Public Use
  Company Number: TW-MLMSERVICE-20220726-3696096-1

PATIENT
  Sex: Female

DRUGS (3)
  1. FLUOROURACIL [Suspect]
     Active Substance: FLUOROURACIL
     Indication: Invasive ductal breast carcinoma
     Dosage: 3 CYCLES
     Route: 065
     Dates: start: 201605, end: 201607
  2. EPIRUBICIN [Suspect]
     Active Substance: EPIRUBICIN
     Indication: Invasive ductal breast carcinoma
     Dosage: 3 CYCLES
     Route: 065
     Dates: start: 201605, end: 201607
  3. CYCLOPHOSPHAMIDE [Suspect]
     Active Substance: CYCLOPHOSPHAMIDE
     Indication: Invasive ductal breast carcinoma
     Dosage: 3 CYCLES
     Route: 065
     Dates: start: 201605, end: 201607

REACTIONS (2)
  - Immune thrombocytopenia [Recovering/Resolving]
  - Heavy menstrual bleeding [Unknown]

NARRATIVE: CASE EVENT DATE: 20160101
